FAERS Safety Report 8154060-5 (Version None)
Quarter: 2012Q1

REPORT INFORMATION
  Report Type: 
  Country: None (occurrence: None)
  Receive Date: 20120221
  Receipt Date: 20120215
  Transmission Date: 20120608
  Serious: Yes (Hospitalization, Other)
  Sender: FDA-Public Use
  Company Number: BR-BRISTOL-MYERS SQUIBB COMPANY-16400640

PATIENT
  Age: 49 Year
  Sex: Male

DRUGS (1)
  1. IPILIMUMAB [Suspect]
     Indication: MALIGNANT MELANOMA
     Dosage: 1DF: 233.4 UNITS NOS
     Route: 042
     Dates: start: 20111125, end: 20120127

REACTIONS (2)
  - NEOPLASM MALIGNANT [None]
  - ERYSIPELAS [None]
